FAERS Safety Report 10668402 (Version 4)
Quarter: 2020Q4

REPORT INFORMATION
  Report Type: Spontaneous
  Country: JP (occurrence: JP)
  Receive Date: 20141222
  Receipt Date: 20201125
  Transmission Date: 20210113
  Serious: Yes (Hospitalization, Other)
  Sender: FDA-Public Use
  Company Number: JP-BRISTOL-MYERS SQUIBB COMPANY-BMS-2014-001595

PATIENT
  Age: 59 Year
  Sex: Male

DRUGS (10)
  1. ERBITUX [Suspect]
     Active Substance: CETUXIMAB
     Indication: SQUAMOUS CELL CARCINOMA OF HEAD AND NECK
     Dosage: 400 MILLIGRAM, QWK ((3 WEEKS OF WEEKLY ADMINISTRATION AND 1 WEEK CESSATION)
     Route: 041
     Dates: start: 20140425, end: 20140425
  2. ERBITUX [Suspect]
     Active Substance: CETUXIMAB
     Dosage: 250 MILLIGRAM, QWK (INCLUDING SKIPPED WEEK, TOTAL: 4107 MG/BODY))
     Route: 041
     Dates: start: 20140711, end: 20140919
  3. 5-FU [FLUOROURACIL] [Concomitant]
     Active Substance: FLUOROURACIL
     Dosage: TOTAL: 17536 MG/BODY
     Route: 065
     Dates: start: 20140711, end: 20140908
  4. MINOCYCLINE HYDROCHLORIDE. [Concomitant]
     Active Substance: MINOCYCLINE HYDROCHLORIDE
     Indication: PROPHYLAXIS
     Dosage: UNK
     Route: 065
  5. CARBOPLATIN. [Suspect]
     Active Substance: CARBOPLATIN
     Indication: SQUAMOUS CELL CARCINOMA OF HEAD AND NECK
     Dosage: TOTAL: 1675MG/BODY, ONLY DAY 1 OF EVERY CYCLE
     Route: 041
     Dates: start: 20140425, end: 20140613
  6. ERBITUX [Suspect]
     Active Substance: CETUXIMAB
     Dosage: 250 MILLIGRAM, QWK (9 TIMES,INCLUDING SKIPPED WEEK, ((3 WEEKS OF WEEKLY ADMINISTRATION AND 1 WEEK CE
     Route: 041
     Dates: end: 20140627
  7. CARBOPLATIN. [Suspect]
     Active Substance: CARBOPLATIN
     Dosage: TOTAL: 1786MG/BODY
     Route: 041
     Dates: start: 20140711, end: 20140905
  8. 5-FU [FLUOROURACIL] [Concomitant]
     Active Substance: FLUOROURACIL
     Indication: SQUAMOUS CELL CARCINOMA OF HEAD AND NECK
     Dosage: CONTINUOUS INFUSION ON DAY 1-4 OF EVERY CYCLE (TOTAL: 17904 MG/BODY)
     Route: 065
     Dates: start: 20140425, end: 20140616
  9. DEXART [Concomitant]
     Active Substance: DEXAMETHASONE SODIUM PHOSPHATE
     Indication: PROPHYLAXIS
     Dosage: UNK
     Route: 042
  10. POLARAMINE [Concomitant]
     Active Substance: DEXCHLORPHENIRAMINE MALEATE
     Indication: PROPHYLAXIS
     Dosage: UNK
     Route: 042

REACTIONS (11)
  - Paronychia [Not Recovered/Not Resolved]
  - Neutrophil count decreased [Recovered/Resolved]
  - Dermatitis acneiform [Not Recovered/Not Resolved]
  - Anaemia [Recovered/Resolved]
  - Hypokalaemia [Recovered/Resolved]
  - Pyrexia [Recovered/Resolved]
  - Dry skin [Not Recovered/Not Resolved]
  - Febrile neutropenia [Recovered/Resolved]
  - Cellulitis [Recovering/Resolving]
  - Platelet count decreased [Recovered/Resolved]
  - White blood cell count decreased [Recovered/Resolved]

NARRATIVE: CASE EVENT DATE: 20140502
